FAERS Safety Report 10181896 (Version 3)
Quarter: 2014Q2

REPORT INFORMATION
  Report Type: Spontaneous
  Country: NZ (occurrence: NZ)
  Receive Date: 20140519
  Receipt Date: 20140605
  Transmission Date: 20141212
  Serious: Yes (Life-Threatening, Hospitalization)
  Sender: FDA-Public Use
  Company Number: NZ-B.I. PHARMACEUTICALS,INC./RIDGEFIELD-2014-BI-17230AU

PATIENT
  Age: 67 Year
  Sex: Male
  Weight: 80 kg

DRUGS (9)
  1. PRADAXA [Suspect]
     Indication: ATRIAL FIBRILLATION
     Dosage: 300 MG
     Route: 065
     Dates: start: 20110706, end: 20140410
  2. DICLOFENAC [Suspect]
     Indication: BACK PAIN
     Route: 065
     Dates: start: 2009, end: 20140410
  3. OMEPRAZOLE [Concomitant]
     Dosage: 40 MG
     Route: 065
     Dates: start: 2009
  4. PARACETAMOL [Concomitant]
     Route: 065
  5. TRAMADOL [Concomitant]
     Route: 065
  6. ATORVASTATIN [Concomitant]
     Dosage: 20 MG
     Route: 065
  7. NORPRES [Concomitant]
     Route: 065
  8. RESPIGEN [Concomitant]
     Route: 065
  9. VOLTAREN [Concomitant]
     Route: 065

REACTIONS (5)
  - Intestinal perforation [Unknown]
  - Haemoglobin decreased [Recovered/Resolved]
  - Fatigue [Not Recovered/Not Resolved]
  - Synovitis [Unknown]
  - Gastrointestinal haemorrhage [Unknown]
